FAERS Safety Report 5168953-4 (Version None)
Quarter: 2006Q4

REPORT INFORMATION
  Report Type: 
  Country: None (occurrence: None)
  Receive Date: 20061211
  Receipt Date: 20020916
  Transmission Date: 20070319
  Serious: Yes (Hospitalization)
  Sender: FDA-Public Use
  Company Number: FR-GLAXOSMITHKLINE-B0280116A

PATIENT
  Age: 1 Day
  Sex: Male
  Weight: 3.5 kg

DRUGS (7)
  1. ZIDOVUDINE [Suspect]
     Indication: ANTIVIRAL PROPHYLAXIS
     Dosage: .7ML FOUR TIMES PER DAY
  2. LAMIVUDINE [Suspect]
     Indication: ANTIVIRAL PROPHYLAXIS
     Dosage: 7ML TWICE PER DAY
  3. ZIDOVUDINE [Suspect]
  4. LAMIVUDINE [Suspect]
  5. STAVUDINE [Suspect]
     Indication: ANTIVIRAL PROPHYLAXIS
  6. INDINIVIR SULFATE [Suspect]
     Indication: ANTIVIRAL PROPHYLAXIS
  7. NELFINAVIR [Suspect]
     Indication: ANTIVIRAL PROPHYLAXIS

REACTIONS (8)
  - ANAEMIA MACROCYTIC [None]
  - BLOOD LACTIC ACID INCREASED [None]
  - DRUG EXPOSURE DURING PREGNANCY [None]
  - GASTRITIS [None]
  - HYPERTRIGLYCERIDAEMIA [None]
  - NEUTROPENIA [None]
  - OESOPHAGITIS [None]
  - TRANSAMINASES INCREASED [None]
